FAERS Safety Report 8314669-2 (Version None)
Quarter: 2012Q2

REPORT INFORMATION
  Report Type: 
  Country: None (occurrence: None)
  Receive Date: 20120426
  Receipt Date: 20120418
  Transmission Date: 20120825
  Serious: Yes (Hospitalization)
  Sender: FDA-Public Use
  Company Number: DE-ELI_LILLY_AND_COMPANY-DE201203007762

PATIENT
  Age: 68 Year
  Sex: Female

DRUGS (3)
  1. QUILONUM                           /00033702/ [Concomitant]
     Dosage: 450 MG, EACH EVENING
  2. TRAZODONE HCL [Concomitant]
     Dosage: 150 MG, EACH EVENING
  3. ZYPREXA [Suspect]
     Indication: DEPRESSION
     Dosage: 2.5 MG, EACH EVENING
     Route: 048

REACTIONS (5)
  - DYSPNOEA [None]
  - PNEUMONIA [None]
  - PLEURAL EFFUSION [None]
  - OFF LABEL USE [None]
  - EYELID OEDEMA [None]
